FAERS Safety Report 10823746 (Version 2)
Quarter: 2015Q1

REPORT INFORMATION
  Report Type: Spontaneous
  Country: NL (occurrence: NL)
  Receive Date: 20150219
  Receipt Date: 20150227
  Transmission Date: 20150721
  Serious: No
  Sender: FDA-Public Use
  Company Number: NL-ROCHE-1540345

PATIENT
  Sex: Female

DRUGS (4)
  1. ALVESCO [Concomitant]
     Active Substance: CICLESONIDE
  2. OMALIZUMAB [Suspect]
     Active Substance: OMALIZUMAB
     Indication: ASTHMA
     Route: 058
     Dates: start: 200912
  3. OMALIZUMAB [Suspect]
     Active Substance: OMALIZUMAB
     Indication: BRONCHIAL OBSTRUCTION
     Route: 058
     Dates: start: 201110
  4. OMALIZUMAB [Suspect]
     Active Substance: OMALIZUMAB
     Route: 058
     Dates: start: 201403

REACTIONS (6)
  - Dermatitis atopic [Not Recovered/Not Resolved]
  - Upper respiratory tract infection [Unknown]
  - Pruritus [Recovered/Resolved]
  - Influenza like illness [Unknown]
  - Myalgia [Not Recovered/Not Resolved]
  - Middle insomnia [Unknown]

NARRATIVE: CASE EVENT DATE: 200912
